FAERS Safety Report 8392561-5 (Version None)
Quarter: 2012Q2

REPORT INFORMATION
  Report Type: 
  Country: None (occurrence: None)
  Receive Date: 20120529
  Receipt Date: 20120517
  Transmission Date: 20120825
  Serious: Yes (Hospitalization)
  Sender: FDA-Public Use
  Company Number: JP-MERCK-1202USA03858

PATIENT
  Age: 55 Year
  Sex: Male

DRUGS (7)
  1. BEZATOL SR [Concomitant]
     Route: 065
     Dates: start: 20110430
  2. GLUCOBAY [Concomitant]
     Route: 065
     Dates: start: 20110911
  3. ZANTAC [Concomitant]
     Route: 065
     Dates: start: 20091121
  4. JANUVIA [Suspect]
     Indication: TYPE 2 DIABETES MELLITUS
     Dosage: AT AROUND 22:00
     Route: 048
     Dates: start: 20120220, end: 20120220
  5. MICARDIS [Concomitant]
     Route: 065
     Dates: start: 20080707
  6. GLIMICRON [Concomitant]
     Route: 065
     Dates: start: 20080423
  7. GLUCOBAY [Concomitant]
     Route: 065
     Dates: start: 20080707, end: 20110910

REACTIONS (1)
  - ASTHMA [None]
